FAERS Safety Report 7041539-2 (Version None)
Quarter: 2010Q4

REPORT INFORMATION
  Report Type: 
  Country: None (occurrence: None)
  Receive Date: 20101013
  Receipt Date: 20100622
  Transmission Date: 20110411
  Serious: No
  Sender: FDA-Public Use
  Company Number: US-ASTRAZENECA-2010SE29230

PATIENT
  Age: 54 Year
  Sex: Female

DRUGS (2)
  1. SYMBICORT [Suspect]
     Indication: SARCOIDOSIS
     Route: 055
     Dates: start: 20100621
  2. ALBUTEROL [Concomitant]

REACTIONS (3)
  - EYE IRRITATION [None]
  - LIP SWELLING [None]
  - SINUSITIS [None]
